FAERS Safety Report 7052704-2 (Version None)
Quarter: 2010Q4

REPORT INFORMATION
  Report Type: 
  Country: None (occurrence: None)
  Receive Date: 20101012
  Receipt Date: 20090901
  Transmission Date: 20110411
  Serious: Yes (Hospitalization, Other)
  Sender: FDA-Public Use
  Company Number: 2009SP023301

PATIENT
  Age: 31 Year
  Sex: Female
  Weight: 93.8946 kg

DRUGS (2)
  1. NUVARING [Suspect]
     Indication: CONTRACEPTION
     Dates: start: 20030201, end: 20070801
  2. TYLENOL (CAPLET) [Concomitant]

REACTIONS (5)
  - CATARACT [None]
  - DEEP VEIN THROMBOSIS [None]
  - MIGRAINE [None]
  - PULMONARY EMBOLISM [None]
  - UVEITIS [None]
